FAERS Safety Report 18207101 (Version 2)
Quarter: 2020Q3

REPORT INFORMATION
  Report Type: Spontaneous
  Country: US (occurrence: US)
  Receive Date: 20200828
  Receipt Date: 20200903
  Transmission Date: 20201103
  Serious: Yes (Other)
  Sender: FDA-Public Use
  Company Number: US-ELI_LILLY_AND_COMPANY-US202008009945

PATIENT
  Age: 34 Year
  Sex: Female

DRUGS (1)
  1. HUMALOG [Suspect]
     Active Substance: INSULIN LISPRO
     Indication: PRODUCT USED FOR UNKNOWN INDICATION
     Dosage: UNK, UNKNOWN
     Route: 065

REACTIONS (5)
  - Dizziness [Unknown]
  - Limbic encephalitis [Unknown]
  - Autoimmune disorder [Unknown]
  - Amnesia [Unknown]
  - Illness [Unknown]

NARRATIVE: CASE EVENT DATE: 202001
